FAERS Safety Report 14795517 (Version 1)
Quarter: 2018Q2

REPORT INFORMATION
  Report Type: Spontaneous
  Country: DE (occurrence: DE)
  Receive Date: 20180423
  Receipt Date: 20180423
  Transmission Date: 20180711
  Serious: Yes (Hospitalization, Other)
  Sender: FDA-Public Use
  Company Number: PHHY2018DE068373

PATIENT

DRUGS (3)
  1. GLATIRAMER ACETATE. [Concomitant]
     Active Substance: GLATIRAMER ACETATE
     Indication: PRODUCT USED FOR UNKNOWN INDICATION
     Dosage: UNK
     Route: 065
  2. COTRIMOXAZOLE [Concomitant]
     Active Substance: SULFAMETHOXAZOLE\TRIMETHOPRIM
     Indication: URINARY TRACT INFECTION
     Dosage: UNK
     Route: 065
  3. PANTOPRAZOLE [Suspect]
     Active Substance: PANTOPRAZOLE
     Indication: ULCER
     Dosage: 20 MG, QD
     Route: 048

REACTIONS (12)
  - Gamma-glutamyltransferase increased [Recovered/Resolved]
  - Hepatic function abnormal [Recovered/Resolved]
  - Hepatic lesion [Recovered/Resolved]
  - Hepatitis acute [Recovered/Resolved]
  - Blood bilirubin increased [Recovered/Resolved]
  - Prothrombin level decreased [Recovered/Resolved]
  - Alanine aminotransferase increased [Recovered/Resolved]
  - Hepatic necrosis [Recovered/Resolved]
  - Aspartate aminotransferase increased [Recovered/Resolved]
  - Blood alkaline phosphatase increased [Recovered/Resolved]
  - Hepatomegaly [Recovered/Resolved]
  - Jaundice [Recovered/Resolved]
